FAERS Safety Report 9474695 (Version 1)
Quarter: 2013Q3

REPORT INFORMATION
  Report Type: Spontaneous
  Country: US (occurrence: US)
  Receive Date: 20130823
  Receipt Date: 20130823
  Transmission Date: 20140515
  Serious: Yes (Other)
  Sender: FDA-Public Use
  Company Number: CHPA2013US013262

PATIENT
  Age: 66 Year
  Sex: Male

DRUGS (2)
  1. EXCEDRIN EXTRA STRENGTH [Suspect]
     Indication: HEADACHE
     Dosage: 2 DF, UNK
     Route: 048
  2. ALEVE [Concomitant]
     Indication: BACK PAIN
     Dosage: UNK, UNK

REACTIONS (2)
  - Spinal fracture [Unknown]
  - Fall [Unknown]
